FAERS Safety Report 10694545 (Version 1)
Quarter: 2015Q1

REPORT INFORMATION
  Report Type: Spontaneous
  Country: GB (occurrence: GB)
  Receive Date: 20150107
  Receipt Date: 20150107
  Transmission Date: 20150721
  Serious: Yes (Other)
  Sender: FDA-Public Use
  Company Number: GB-BIOGENIDEC-2015BI000355

PATIENT
  Sex: Female

DRUGS (4)
  1. AMITRIPTYLINE [Concomitant]
     Active Substance: AMITRIPTYLINE
     Indication: PAIN
     Dates: start: 2009
  2. TRAMADOL [Concomitant]
     Active Substance: TRAMADOL
     Indication: PAIN
     Dates: start: 2010
  3. TECFIDERA [Suspect]
     Active Substance: DIMETHYL FUMARATE
     Indication: MULTIPLE SCLEROSIS
     Route: 048
     Dates: start: 20141125, end: 20141210
  4. BRUFEN [Concomitant]
     Active Substance: IBUPROFEN
     Indication: PAIN

REACTIONS (9)
  - Urticaria [Unknown]
  - Hypersensitivity [Unknown]
  - Pruritus [Unknown]
  - Rash [Unknown]
  - Feeling hot [Unknown]
  - Flushing [Unknown]
  - Burning sensation [Unknown]
  - Erythema [Unknown]
  - Paraesthesia [Unknown]
